FAERS Safety Report 8525478-3 (Version None)
Quarter: 2012Q3

REPORT INFORMATION
  Report Type: 
  Country: None (occurrence: None)
  Receive Date: 20120720
  Receipt Date: 20120713
  Transmission Date: 20120928
  Serious: Yes (Other)
  Sender: FDA-Public Use
  Company Number: CA-JNJFOC-20120105896

PATIENT
  Sex: Female
  Weight: 87 kg

DRUGS (5)
  1. REMICADE [Suspect]
     Indication: CROHN'S DISEASE
     Dosage: DOSE 0, 2, 4 WEEKS
     Route: 042
     Dates: start: 20111011
  2. COLESEVELAM HYDROCHLORIDE [Concomitant]
     Route: 065
     Dates: start: 20120524
  3. HYDROCORTISONE [Concomitant]
     Indication: PREMEDICATION
     Route: 042
  4. DIPHENOXYLATE [Concomitant]
     Route: 048
     Dates: start: 20120524
  5. BENADRYL [Concomitant]
     Indication: PREMEDICATION
     Route: 042

REACTIONS (7)
  - CHEST DISCOMFORT [None]
  - INFUSION RELATED REACTION [None]
  - THROAT TIGHTNESS [None]
  - CYANOSIS [None]
  - FLUSHING [None]
  - BLOOD PRESSURE INCREASED [None]
  - FEELING HOT [None]
